FAERS Safety Report 10621700 (Version 1)
Quarter: 2014Q4

REPORT INFORMATION
  Report Type: Report from Study
  Country: CA (occurrence: CA)
  Receive Date: 20141203
  Receipt Date: 20141203
  Transmission Date: 20150529
  Serious: Yes (Other)
  Sender: FDA-Public Use
  Company Number: PHHY2014CA156290

PATIENT
  Sex: Female

DRUGS (3)
  1. TOBI [Suspect]
     Active Substance: TOBRAMYCIN
     Indication: CYSTIC FIBROSIS
     Route: 065
     Dates: end: 2004
  2. TOBI [Suspect]
     Active Substance: TOBRAMYCIN
     Indication: OFF LABEL USE
     Dosage: UNK
     Route: 065
     Dates: start: 20121001
  3. TOBI PODHALER [Suspect]
     Active Substance: TOBRAMYCIN
     Indication: CYSTIC FIBROSIS
     Dosage: UNK
     Route: 065
     Dates: start: 20131101

REACTIONS (3)
  - Pseudomonas infection [Unknown]
  - Cough [Unknown]
  - Vocal cord disorder [Unknown]
